FAERS Safety Report 7818437-7 (Version None)
Quarter: 2011Q4

REPORT INFORMATION
  Report Type: 
  Country: None (occurrence: None)
  Receive Date: 20111017
  Receipt Date: 20101102
  Transmission Date: 20120403
  Serious: No
  Sender: FDA-Public Use
  Company Number: US-BAYER-201022040NA

PATIENT
  Age: 47 Year
  Sex: Female
  Weight: 111 kg

DRUGS (19)
  1. LIPITOR [Concomitant]
  2. PREDNISONE [Concomitant]
     Dosage: 50 MG
     Dates: start: 20100929, end: 20100929
  3. BENADRYL [Concomitant]
     Dosage: 50 MG
     Dates: start: 20100929, end: 20100929
  4. ULTRAVIST 300 [Suspect]
     Indication: COMPUTERISED TOMOGRAM ABDOMEN
     Dosage: 1ML/SEC INTO UNSPECIFIED SITE, WARMER AND POWER INJECTOR
     Route: 042
     Dates: start: 20100422, end: 20100422
  5. ULTRAVIST 300 [Suspect]
     Dosage: 1.0 ML/SEC INTO RIGHT ANTECUBITAL, POWER INJECTOR AND WARMER
     Route: 042
     Dates: start: 20101102, end: 20101102
  6. ULTRAVIST 300 [Suspect]
     Dosage: UNK
  7. EFFEXOR [Concomitant]
  8. SYNTHROID [Concomitant]
  9. DIOVAN [Concomitant]
  10. ULTRAVIST 300 [Suspect]
     Dosage: 0.8ML/SEC INTO LEFT ANTECUBITAL, POWER INJECTOR AND WARMER
     Route: 042
     Dates: start: 20100929, end: 20100929
  11. HUMALOG [Concomitant]
  12. EFFEXOR XR [Concomitant]
  13. PREDNISONE [Concomitant]
     Dosage: PREMEDICATED  BEFORE SCAN
     Dates: start: 20100928, end: 20100928
  14. ULTRAVIST 300 [Suspect]
     Indication: COMPUTERISED TOMOGRAM THORAX
     Dosage: 1.0 ML/SEC INTO LEFT ANTECUBITAL USING POWER INJECTOR
     Route: 042
     Dates: start: 20100607, end: 20100607
  15. READI-CAT [Concomitant]
     Dosage: UNK, ONCE
     Route: 048
     Dates: start: 20101102, end: 20101102
  16. LANTUS [Concomitant]
  17. BENADRYL [Concomitant]
     Route: 048
     Dates: start: 20100607, end: 20100607
  18. READI-CAT [Concomitant]
     Route: 048
     Dates: start: 20100422, end: 20100422
  19. ZYRTEC [Concomitant]

REACTIONS (7)
  - THROAT IRRITATION [None]
  - RHINORRHOEA [None]
  - NASAL CONGESTION [None]
  - PRURITUS [None]
  - COUGH [None]
  - EYE PRURITUS [None]
  - EAR PRURITUS [None]
